FAERS Safety Report 13801876 (Version 2)
Quarter: 2017Q3

REPORT INFORMATION
  Report Type: Spontaneous
  Country: JP (occurrence: JP)
  Receive Date: 20170727
  Receipt Date: 20170804
  Transmission Date: 20171127
  Serious: Yes (Hospitalization, Other)
  Sender: FDA-Public Use
  Company Number: JP-SUNOVION-2017SUN003250

PATIENT
  Age: 82 Year
  Sex: Male

DRUGS (2)
  1. SOFTEAR [Concomitant]
     Dosage: UNK
  2. INDACATEROL AND GLYCOPYRROLATE [Suspect]
     Active Substance: GLYCOPYRROLATE\INDACATEROL MALEATE
     Indication: CHRONIC OBSTRUCTIVE PULMONARY DISEASE
     Dosage: 1 DF, QD
     Route: 048

REACTIONS (4)
  - Incorrect route of drug administration [Unknown]
  - Vision blurred [Unknown]
  - Prostate cancer [Unknown]
  - Cerebral infarction [Unknown]
